FAERS Safety Report 6454308-9 (Version None)
Quarter: 2009Q4

REPORT INFORMATION
  Report Type: 
  Country: None (occurrence: None)
  Receive Date: 20091124
  Receipt Date: 20091117
  Transmission Date: 20100525
  Serious: Yes (Hospitalization, Other)
  Sender: FDA-Public Use
  Company Number: US-JNJCH-2009029036

PATIENT
  Age: 62 Year
  Sex: Female
  Weight: 44.5 kg

DRUGS (6)
  1. LISTERINE [Suspect]
     Indication: ALCOHOLIC
     Dosage: TEXT:UNSPECIFIED AMOUNT IN MORNING AND DAILY
     Route: 048
  2. STOMATOLOGICALS, MOUTH PREPARATIONS [Suspect]
     Indication: DRUG USE FOR UNKNOWN INDICATION
     Dosage: TEXT:UNSPECIFIED
     Route: 065
  3. DRUG, UNSPECIFIED [Concomitant]
     Indication: NEOPLASM MALIGNANT
     Dosage: TEXT:1 DAILY
     Route: 065
  4. DRUG, UNSPECIFIED [Concomitant]
     Indication: RHEUMATOID ARTHRITIS
     Dosage: TEXT:1 DAILY
     Route: 065
  5. DRUG, UNSPECIFIED [Concomitant]
     Indication: LYME DISEASE
     Dosage: TEXT:2 DAILY
     Route: 065
  6. MULTI-VITAMINS [Concomitant]
     Indication: MEDICAL DIET
     Dosage: TEXT:1 DAILY
     Route: 065

REACTIONS (6)
  - ALCOHOLISM [None]
  - DEPENDENCE [None]
  - DRUG ABUSE [None]
  - FALL [None]
  - HIP FRACTURE [None]
  - INCORRECT ROUTE OF DRUG ADMINISTRATION [None]
